FAERS Safety Report 6183806-0 (Version None)
Quarter: 2009Q2

REPORT INFORMATION
  Report Type: 
  Country: None (occurrence: None)
  Receive Date: 20090508
  Receipt Date: 20090427
  Transmission Date: 20091009
  Serious: Yes (Hospitalization)
  Sender: FDA-Public Use
  Company Number: BR-NOVOPROD-286190

PATIENT
  Age: 16 Year
  Sex: Male
  Weight: 47 kg

DRUGS (2)
  1. NORDITROPIN [Suspect]
     Indication: GROWTH RETARDATION
     Dosage: .5 MG, QD
     Route: 058
     Dates: start: 20090409, end: 20090412
  2. NORDITROPIN [Suspect]
     Dosage: .5 MG, QD
     Route: 058
     Dates: start: 20090418

REACTIONS (1)
  - PANIC DISORDER [None]
